FAERS Safety Report 4910656-2 (Version None)
Quarter: 2006Q1

REPORT INFORMATION
  Report Type: 
  Country: None (occurrence: None)
  Receive Date: 20060210
  Receipt Date: 20060210
  Transmission Date: 20060701
  Serious: No
  Sender: FDA-Public Use
  Company Number: None

PATIENT

DRUGS (2)
  1. TUBERSOL [Suspect]
     Dosage: INJECTANLE
  2. TETNUS TOXOID ABSORBED [Suspect]
     Dosage: INJECTABLE

REACTIONS (5)
  - INJECTION SITE ERYTHEMA [None]
  - INJECTION SITE INDURATION [None]
  - MEDICATION ERROR [None]
  - PAIN [None]
  - WRONG DRUG ADMINISTERED [None]
